FAERS Safety Report 16566690 (Version 2)
Quarter: 2024Q1

REPORT INFORMATION
  Report Type: Spontaneous
  Country: JP (occurrence: JP)
  Receive Date: 20190712
  Receipt Date: 20240319
  Transmission Date: 20240410
  Serious: Yes (Hospitalization, Other)
  Sender: FDA-Public Use
  Company Number: JP-PFIZER INC-2019290122

PATIENT
  Age: 68 Year
  Sex: Male

DRUGS (1)
  1. VYNDAQEL [Suspect]
     Active Substance: TAFAMIDIS MEGLUMINE
     Indication: Cardiac amyloidosis
     Dosage: 80 MG, DAILY
     Route: 048
     Dates: start: 20190309

REACTIONS (2)
  - Hepatic neoplasm [Unknown]
  - Exeresis [Unknown]

NARRATIVE: CASE EVENT DATE: 20190701
